FAERS Safety Report 13186213 (Version 1)
Quarter: 2017Q1

REPORT INFORMATION
  Report Type: Spontaneous
  Country: US (occurrence: US)
  Receive Date: 20170204
  Receipt Date: 20170204
  Transmission Date: 20170428
  Serious: No
  Sender: FDA-Public Use
  Company Number: US-TEVA-732809ACC

PATIENT
  Age: 32 Year
  Sex: Male

DRUGS (3)
  1. ADVIL [Concomitant]
     Active Substance: IBUPROFEN
  2. LORAZEPAM. [Concomitant]
     Active Substance: LORAZEPAM
  3. COPAXONE [Suspect]
     Active Substance: GLATIRAMER ACETATE
     Indication: MULTIPLE SCLEROSIS
     Dosage: PREFILLED SYRINGE
     Route: 058
     Dates: start: 201510

REACTIONS (3)
  - Injection site reaction [Unknown]
  - Palpitations [Unknown]
  - Flushing [Unknown]

NARRATIVE: CASE EVENT DATE: 201510
